FAERS Safety Report 5179176-7 (Version None)
Quarter: 2006Q4

REPORT INFORMATION
  Report Type: 
  Country: None (occurrence: None)
  Receive Date: 20061219
  Receipt Date: 20061212
  Transmission Date: 20070319
  Serious: Yes (Hospitalization)
  Sender: FDA-Public Use
  Company Number: NL-SANOFI-SYNTHELABO-F01200602500

PATIENT
  Sex: Male

DRUGS (8)
  1. RAMIPRIL [Concomitant]
  2. PRAVASTATIN [Concomitant]
  3. METOPROLOL SUCCINATE [Concomitant]
  4. OSCAL [Concomitant]
  5. CETUXIMAB [Suspect]
     Dosage: 400 MG/M2 DAY 1 OF CYCLE 1, THEREAFTER 250 MG/M2 WEEKLY
     Route: 041
     Dates: start: 20051221, end: 20051221
  6. BEVACIZUMAB [Suspect]
     Route: 041
     Dates: start: 20051221, end: 20051221
  7. CAPECITABINE [Suspect]
     Dosage: DAYS 1-14 (1250 MG/M2 AFTER CYCLE 6) 2150
     Route: 048
     Dates: start: 20051221
  8. OXALIPLATIN [Suspect]
     Indication: COLORECTAL CANCER
     Route: 041
     Dates: start: 20051227, end: 20051227

REACTIONS (5)
  - COLITIS ISCHAEMIC [None]
  - DIARRHOEA [None]
  - SEPSIS [None]
  - SEPTIC SHOCK [None]
  - VOMITING [None]
